FAERS Safety Report 4328429-0 (Version None)
Quarter: 2004Q1

REPORT INFORMATION
  Report Type: 
  Country: None (occurrence: None)
  Receive Date: 20040324
  Receipt Date: 20030425
  Transmission Date: 20041129
  Serious: Yes (Hospitalization)
  Sender: FDA-Public Use
  Company Number: K200300710

PATIENT
  Age: 42 Year
  Sex: Female

DRUGS (9)
  1. ALTACE [Suspect]
     Indication: CARDIAC FAILURE CONGESTIVE
     Dosage: 2.5 MG, QD, ORAL
     Route: 048
     Dates: start: 20030407
  2. LASIX [Suspect]
     Indication: CARDIAC FAILURE CONGESTIVE
     Dosage: 40 MG, QD, ORAL
     Route: 048
     Dates: start: 20030101
  3. ZAROXOLYN [Suspect]
     Indication: CARDIAC FAILURE CONGESTIVE
     Dosage: 2.5 MG, QD, ORAL
     Route: 048
  4. ENOXAPARIN SODIUM [Suspect]
     Indication: CARDIAC FAILURE CONGESTIVE
     Dosage: 40 MG, QD, SUBCUTANEOUS
     Route: 058
     Dates: start: 20030409, end: 20030409
  5. ENOXAPARIN SODIUM [Suspect]
     Indication: CARDIAC FAILURE CONGESTIVE
     Dosage: 40 MG, QD, SUBCUTANEOUS
     Route: 058
     Dates: start: 20030411
  6. NORVASC [Concomitant]
  7. INSULIN [Concomitant]
  8. LIPITOR [Concomitant]
  9. COREG [Concomitant]

REACTIONS (2)
  - BLOOD CREATININE INCREASED [None]
  - RENAL IMPAIRMENT [None]
